FAERS Safety Report 7144637-8 (Version None)
Quarter: 2010Q4

REPORT INFORMATION
  Report Type: 
  Country: None (occurrence: None)
  Receive Date: 20101119
  Receipt Date: 20100211
  Transmission Date: 20110411
  Serious: Yes (Hospitalization)
  Sender: FDA-Public Use
  Company Number: UTC-000787

PATIENT
  Age: 85 Year
  Sex: Male
  Weight: 89 kg

DRUGS (12)
  1. TYVASO [Suspect]
     Indication: PULMONARY ARTERIAL HYPERTENSION
     Dosage: (36 MCG, 1 D), INHALATION
     Route: 055
     Dates: start: 20091117, end: 20091231
  2. TYVASO [Suspect]
  3. DIGOXIN [Concomitant]
  4. BUMEX [Concomitant]
  5. LASIX [Concomitant]
  6. COUMADIN [Concomitant]
  7. PLAVIX [Concomitant]
  8. PREDNISONE TAB [Concomitant]
  9. SINGULAIR [Concomitant]
  10. ALBUTEROL [Concomitant]
  11. BROVANA (ARFORMOTEROL TARTRATE) [Concomitant]
  12. MICARDIS [Concomitant]

REACTIONS (2)
  - DRUG INEFFECTIVE [None]
  - PNEUMONIA [None]
